FAERS Safety Report 7785201-7 (Version None)
Quarter: 2011Q3

REPORT INFORMATION
  Report Type: 
  Country: None (occurrence: None)
  Receive Date: 20110929
  Receipt Date: 20090609
  Transmission Date: 20111222
  Serious: No
  Sender: FDA-Public Use
  Company Number: 2009BI018114

PATIENT
  Sex: Female

DRUGS (1)
  1. TYSABRI [Suspect]
     Indication: MULTIPLE SCLEROSIS
     Dates: start: 20080118, end: 20090820

REACTIONS (5)
  - MUSCULOSKELETAL DISORDER [None]
  - STRESS [None]
  - CYSTITIS [None]
  - RASH PRURITIC [None]
  - URINARY TRACT INFECTION [None]
